FAERS Safety Report 10576836 (Version 1)
Quarter: 2014Q4

REPORT INFORMATION
  Report Type: Spontaneous
  Country: GB (occurrence: GB)
  Receive Date: 20141111
  Receipt Date: 20141111
  Transmission Date: 20150529
  Serious: Yes (Other)
  Sender: FDA-Public Use
  Company Number: GB-JNJFOC-20141012632

PATIENT
  Age: 71 Year
  Sex: Male
  Weight: 111 kg

DRUGS (4)
  1. DIHYDROCODEINE [Concomitant]
     Active Substance: DIHYDROCODEINE
     Route: 065
  2. XARELTO [Suspect]
     Active Substance: RIVAROXABAN
     Indication: THROMBOSIS PROPHYLAXIS
     Route: 048
     Dates: start: 20140620
  3. XARELTO [Suspect]
     Active Substance: RIVAROXABAN
     Indication: KNEE ARTHROPLASTY
     Route: 048
     Dates: start: 20140620
  4. IBUPROFEN. [Concomitant]
     Active Substance: IBUPROFEN
     Route: 065

REACTIONS (1)
  - Urticaria [Recovered/Resolved]

NARRATIVE: CASE EVENT DATE: 20140702
